FAERS Safety Report 22634692 (Version 1)
Quarter: 2023Q2

REPORT INFORMATION
  Report Type: Spontaneous
  Country: FR (occurrence: FR)
  Receive Date: 20230623
  Receipt Date: 20230623
  Transmission Date: 20230721
  Serious: Yes (Death)
  Sender: FDA-Public Use
  Company Number: None

PATIENT
  Age: 61 Year
  Sex: Male
  Weight: 96 kg

DRUGS (9)
  1. PREGABALIN [Suspect]
     Active Substance: PREGABALIN
     Indication: Depression
     Dosage: BID (1 IN THE MORNING AND 1 IN THE EVENING)
     Route: 048
     Dates: start: 20221209
  2. VALIUM [Suspect]
     Active Substance: DIAZEPAM
     Indication: Anxiety
     Dosage: TID (15 DROPS MORNING, AFTERNOON AND BEDTIME)
     Route: 048
     Dates: start: 20230104
  3. TRIMEPRAZINE [Suspect]
     Active Substance: TRIMEPRAZINE
     Indication: Psychotic behaviour
     Dosage: 4 DOSAGE FORM, QD (4 TABS IN THE EVENING)
     Route: 048
     Dates: start: 20221209
  4. RISPERIDONE [Suspect]
     Active Substance: RISPERIDONE
     Indication: Schizoaffective disorder
     Dosage: BID (2 MG IN THE MORNING AND 4 MG IN THE EVENING)
     Route: 048
     Dates: start: 20221223
  5. VALPROATE SODIUM [Suspect]
     Active Substance: VALPROATE SODIUM
     Indication: Dyskinesia
     Dosage: BID (500 MG IN MORNING AND 1000 MG IN EVENING)
     Route: 048
     Dates: start: 20220118
  6. MIRTAZAPINE [Suspect]
     Active Substance: MIRTAZAPINE
     Indication: Depression
     Dosage: 1 DOSAGE FORM, QD (1 TAB IN THE EVENING)
     Route: 048
     Dates: start: 20230130
  7. VENLAFAXINE [Suspect]
     Active Substance: VENLAFAXINE HYDROCHLORIDE
     Indication: Depression
     Dosage: 1 DOSAGE FORM, QD (1 CAPSULE IN THE MORNING)
     Route: 048
     Dates: start: 20230131
  8. TROPATEPINE HYDROCHLORIDE [Suspect]
     Active Substance: TROPATEPINE HYDROCHLORIDE
     Indication: Dyskinesia hyperpyrexia syndrome
     Dosage: 1 TAB IN THE MORNING + 1 IF NECESSARY
     Route: 048
     Dates: start: 20230102
  9. PALIPERIDONE PALMITATE [Suspect]
     Active Substance: PALIPERIDONE PALMITATE
     Indication: Schizophrenia
     Dosage: 1 DF, Q28D (1 INJ. PER 28 DAYS, EVENING OF FEB 1)
     Route: 030
     Dates: start: 20230201

REACTIONS (1)
  - Cardio-respiratory arrest [Fatal]

NARRATIVE: CASE EVENT DATE: 20230202
